FAERS Safety Report 8485497 (Version 2)
Quarter: 2014Q1

REPORT INFORMATION
  Report Type: Spontaneous
  Country: US (occurrence: US)
  Receive Date: 20120330
  Receipt Date: 20140107
  Transmission Date: 20141002
  Serious: Yes (Hospitalization, Other)
  Sender: FDA-Public Use
  Company Number: US-ROCHE-1024472

PATIENT
  Age: 18 Year
  Sex: Male
  Weight: 65.83 kg

DRUGS (2)
  1. ACCUTANE [Suspect]
     Indication: ACNE
     Route: 048
     Dates: start: 1997
  2. ACCUTANE [Suspect]
     Route: 048
     Dates: start: 199801, end: 199903

REACTIONS (8)
  - Colitis ulcerative [Unknown]
  - Emotional distress [Unknown]
  - Inflammatory bowel disease [Unknown]
  - Depression [Unknown]
  - Back pain [Unknown]
  - Sinusitis [Unknown]
  - Spinal disorder [Unknown]
  - Ear infection [Unknown]
